FAERS Safety Report 4502291-5 (Version None)
Quarter: 2004Q4

REPORT INFORMATION
  Report Type: 
  Country: None (occurrence: None)
  Receive Date: 20041116
  Receipt Date: 20040706
  Transmission Date: 20050328
  Serious: Yes (Hospitalization)
  Sender: FDA-Public Use
  Company Number: 48913

PATIENT
  Age: 65 Year
  Sex: Female
  Weight: 72 kg

DRUGS (4)
  1. TOPOTECAN [Suspect]
     Indication: OVARIAN CANCER
     Dosage: 2MGM2 CYCLIC
     Route: 042
     Dates: end: 20040615
  2. GEMCITABINE [Suspect]
     Indication: OVARIAN CANCER
     Dosage: 800MGM2 CYCLIC
     Route: 042
     Dates: end: 20040615
  3. MORPHINE [Concomitant]
     Dosage: 75MG AS REQUIRED
     Route: 048
     Dates: start: 20040601, end: 20040702
  4. DILAUDID [Concomitant]
     Dosage: 7MG AS REQUIRED
     Route: 048
     Dates: start: 20040504, end: 20040702

REACTIONS (2)
  - ABDOMINAL PAIN UPPER [None]
  - SPLENIC HAEMORRHAGE [None]
